FAERS Safety Report 19874531 (Version 1)
Quarter: 2021Q3

REPORT INFORMATION
  Report Type: Spontaneous
  Country: US (occurrence: US)
  Receive Date: 20210922
  Receipt Date: 20210922
  Transmission Date: 20211014
  Serious: No
  Sender: FDA-Public Use
  Company Number: US-SA-2021SA309504

PATIENT
  Age: 59 Year
  Sex: Female

DRUGS (2)
  1. ALLEGRA?D [Concomitant]
     Active Substance: FEXOFENADINE HYDROCHLORIDE\PSEUDOEPHEDRINE HYDROCHLORIDE
     Dosage: UNK UNK, QD
     Route: 065
  2. ALLEGRA [Suspect]
     Active Substance: FEXOFENADINE HYDROCHLORIDE
     Dosage: DRUG STRUCTURE DOSAGE : 1 TABLET DRUG INTERVAL DOSAGE : AT NIGHT
     Route: 065

REACTIONS (2)
  - Suspected product quality issue [Unknown]
  - Drug ineffective [Unknown]
